FAERS Safety Report 19066141 (Version 2)
Quarter: 2022Q2

REPORT INFORMATION
  Report Type: Report from Study
  Country: US (occurrence: US)
  Receive Date: 20210327
  Receipt Date: 20220504
  Transmission Date: 20220720
  Serious: Yes (Other)
  Sender: FDA-Public Use
  Company Number: US-TEVA-2021-US-1894381

PATIENT
  Age: 18 Year
  Sex: Female
  Weight: 63.5 kg

DRUGS (2)
  1. CLARAVIS [Suspect]
     Active Substance: ISOTRETINOIN
     Route: 065
     Dates: start: 2019, end: 2019
  2. CLARAVIS [Suspect]
     Active Substance: ISOTRETINOIN
     Dosage: 40 MILLIGRAM DAILY;
     Route: 065
     Dates: start: 202102

REACTIONS (11)
  - Sensory loss [Unknown]
  - Disease recurrence [Unknown]
  - Alopecia [Unknown]
  - Back pain [Unknown]
  - Arthralgia [Unknown]
  - Dry skin [Unknown]
  - Chapped lips [Unknown]
  - Antinuclear antibody increased [Unknown]
  - Blood folate decreased [Unknown]
  - Dry eye [Unknown]
  - Nasal dryness [Unknown]

NARRATIVE: CASE EVENT DATE: 20210101
